FAERS Safety Report 19457000 (Version 4)
Quarter: 2022Q1

REPORT INFORMATION
  Report Type: Report from Study
  Country: CA (occurrence: CA)
  Receive Date: 20210624
  Receipt Date: 20220120
  Transmission Date: 20220423
  Serious: Yes (Hospitalization, Other)
  Sender: FDA-Public Use
  Company Number: CA-JNJFOC-20210638700

PATIENT
  Age: 70 Year
  Sex: Female
  Weight: 83 kg

DRUGS (2)
  1. REMICADE [Suspect]
     Active Substance: INFLIXIMAB
     Indication: Psoriatic arthropathy
     Dosage: RESTARTED REMICADE ON 29-JUL-2021.?ON 21-SEP-2021, THE PATIENT HAD SECOND DOSE OF REMICADE SINCE SUR
     Route: 042
     Dates: start: 20190307
  2. REMICADE [Suspect]
     Active Substance: INFLIXIMAB
     Indication: Rheumatoid arthritis

REACTIONS (2)
  - Breast cancer [Not Recovered/Not Resolved]
  - Intestinal perforation [Recovered/Resolved]

NARRATIVE: CASE EVENT DATE: 20210607
